FAERS Safety Report 9532168 (Version 3)
Quarter: 2013Q4

REPORT INFORMATION
  Report Type: Spontaneous
  Country: US (occurrence: US)
  Receive Date: 20130918
  Receipt Date: 20131226
  Transmission Date: 20140711
  Serious: Yes (Hospitalization, Other)
  Sender: FDA-Public Use
  Company Number: US-INCYTE CORPORATION-2013IN002104

PATIENT
  Age: 42 Year
  Sex: Female

DRUGS (5)
  1. JAKAFI [Suspect]
     Indication: MYELOFIBROSIS
     Dosage: 10 MG, BID
     Route: 048
     Dates: start: 20130814, end: 20130910
  2. FORTEO [Concomitant]
  3. VITAMIN B12 [Concomitant]
  4. KLONOPIN [Concomitant]
  5. REMERON [Concomitant]

REACTIONS (11)
  - Transient ischaemic attack [Recovering/Resolving]
  - Blood potassium decreased [Recovering/Resolving]
  - Convulsion [Recovering/Resolving]
  - Nausea [Recovering/Resolving]
  - Vomiting [Recovering/Resolving]
  - Bone pain [Recovering/Resolving]
  - Myalgia [Recovering/Resolving]
  - Gait disturbance [Recovering/Resolving]
  - Pyrexia [Recovering/Resolving]
  - Muscle spasms [Recovering/Resolving]
  - Petechiae [Recovering/Resolving]
